FAERS Safety Report 5941649-4 (Version None)
Quarter: 2008Q4

REPORT INFORMATION
  Report Type: 
  Country: None (occurrence: None)
  Receive Date: 20081104
  Receipt Date: 20081104
  Transmission Date: 20090506
  Serious: Yes (Death)
  Sender: FDA-Public Use
  Company Number: None

PATIENT
  Age: 72 Year
  Sex: Female
  Weight: 49.8957 kg

DRUGS (1)
  1. NEXAVAR [Suspect]
     Indication: ANGIOSARCOMA
     Dosage: 2 TWO TIMES DAY PO
     Route: 048
     Dates: start: 20081009, end: 20081011

REACTIONS (1)
  - ADVERSE DRUG REACTION [None]
